FAERS Safety Report 23361183 (Version 2)
Quarter: 2024Q2

REPORT INFORMATION
  Report Type: Spontaneous
  Country: US (occurrence: US)
  Receive Date: 20240103
  Receipt Date: 20240514
  Transmission Date: 20240716
  Serious: Yes (Disabling, Other)
  Sender: FDA-Public Use
  Company Number: US-SANOFI-01888673

PATIENT
  Age: 65 Year
  Sex: Male

DRUGS (3)
  1. TOUJEO MAX [Suspect]
     Active Substance: INSULIN GLARGINE
     Indication: Type 2 diabetes mellitus
     Dosage: 55 TO 65 UNITS QD
  2. TOUJEO MAX [Suspect]
     Active Substance: INSULIN GLARGINE
     Dosage: 55 U, QD
  3. TOUJEO MAX [Suspect]
     Active Substance: INSULIN GLARGINE
     Dosage: 34 IU, QD

REACTIONS (7)
  - Cerebrovascular accident [Unknown]
  - Visual impairment [Unknown]
  - Gait disturbance [Unknown]
  - Impaired driving ability [Unknown]
  - Aphasia [Unknown]
  - Amnesia [Unknown]
  - Cough [Unknown]

NARRATIVE: CASE EVENT DATE: 20230101
